FAERS Safety Report 5833037-6 (Version None)
Quarter: 2008Q3

REPORT INFORMATION
  Report Type: 
  Country: None (occurrence: None)
  Receive Date: 20080805
  Receipt Date: 20080718
  Transmission Date: 20090109
  Serious: No
  Sender: FDA-Public Use
  Company Number: US-ASTRAZENECA-2008UW15033

PATIENT
  Age: 68 Year
  Sex: Female
  Weight: 86.2 kg

DRUGS (4)
  1. ARIMIDEX [Suspect]
     Indication: BREAST CANCER
  2. SYNTHROID [Concomitant]
  3. CRESTOR [Concomitant]
     Route: 048
  4. MULTI-VITAMIN [Concomitant]

REACTIONS (3)
  - ARTHRITIS [None]
  - CALCINOSIS [None]
  - SCIATICA [None]
